FAERS Safety Report 8544614-6 (Version None)
Quarter: 2012Q3

REPORT INFORMATION
  Report Type: 
  Country: None (occurrence: None)
  Receive Date: 20120727
  Receipt Date: 20120717
  Transmission Date: 20120928
  Serious: Yes (Other)
  Sender: FDA-Public Use
  Company Number: JP-ASTRAZENECA-2012SE51849

PATIENT
  Age: 94 Year
  Sex: Female

DRUGS (4)
  1. SEROQUEL [Suspect]
     Indication: DISORIENTATION
     Route: 048
  2. SEROQUEL [Suspect]
     Route: 048
  3. SEROQUEL [Suspect]
     Indication: HYPERKINESIA
     Route: 048
  4. SEROQUEL [Suspect]
     Route: 048

REACTIONS (4)
  - BRADYCARDIA [None]
  - HYPERKINESIA [None]
  - DRUG INEFFECTIVE FOR UNAPPROVED INDICATION [None]
  - SHOCK [None]
